FAERS Safety Report 6688223-2 (Version None)
Quarter: 2010Q2

REPORT INFORMATION
  Report Type: 
  Country: None (occurrence: None)
  Receive Date: 20100420
  Receipt Date: 20100416
  Transmission Date: 20101027
  Serious: Yes (Other)
  Sender: FDA-Public Use
  Company Number: JP-ALLERGAN-1001324US

PATIENT
  Age: 45 Year
  Sex: Female

DRUGS (2)
  1. ALESION TABLET [Suspect]
     Indication: RHINITIS
     Dosage: UNK
     Route: 048
     Dates: start: 20091201, end: 20100107
  2. CRESTOR [Suspect]
     Indication: HYPERLIPIDAEMIA
     Dosage: UNK
     Route: 048
     Dates: start: 20091215, end: 20100106

REACTIONS (1)
  - HEPATITIS [None]
